FAERS Safety Report 19357959 (Version 2)
Quarter: 2021Q3

REPORT INFORMATION
  Report Type: Report from Study
  Country: None (occurrence: US)
  Receive Date: 20210602
  Receipt Date: 20210728
  Transmission Date: 20211014
  Serious: Yes (Disabling, Other)
  Sender: FDA-Public Use
  Company Number: US-ABBVIE-21K-163-3815112-00

PATIENT
  Age: 53 Year
  Sex: Female

DRUGS (10)
  1. HUMIRA [Suspect]
     Active Substance: ADALIMUMAB
     Indication: RHEUMATOID ARTHRITIS
     Route: 058
     Dates: start: 2011
  2. HUMIRA [Suspect]
     Active Substance: ADALIMUMAB
     Route: 058
     Dates: end: 2020
  3. HUMIRA [Suspect]
     Active Substance: ADALIMUMAB
     Route: 058
     Dates: start: 2020, end: 202101
  4. VICODIN [Concomitant]
     Active Substance: ACETAMINOPHEN\HYDROCODONE BITARTRATE
     Indication: PRODUCT USED FOR UNKNOWN INDICATION
  5. FOLIC ACID. [Concomitant]
     Active Substance: FOLIC ACID
     Indication: PRODUCT USED FOR UNKNOWN INDICATION
  6. HUMIRA [Suspect]
     Active Substance: ADALIMUMAB
     Route: 058
     Dates: start: 20210302, end: 2021
  7. METHOTREXATE. [Concomitant]
     Active Substance: METHOTREXATE
     Indication: PRODUCT USED FOR UNKNOWN INDICATION
  8. PREDNISONE. [Concomitant]
     Active Substance: PREDNISONE
     Indication: PRODUCT USED FOR UNKNOWN INDICATION
  9. HUMIRA [Suspect]
     Active Substance: ADALIMUMAB
     Route: 058
     Dates: start: 2021
  10. CELEBREX [Concomitant]
     Active Substance: CELECOXIB
     Indication: PRODUCT USED FOR UNKNOWN INDICATION

REACTIONS (22)
  - Pain in extremity [Not Recovered/Not Resolved]
  - Illness [Recovered/Resolved]
  - Emotional disorder [Unknown]
  - Illness [Unknown]
  - Loss of personal independence in daily activities [Not Recovered/Not Resolved]
  - Musculoskeletal stiffness [Unknown]
  - Pain [Unknown]
  - Intentional product misuse [Unknown]
  - Anxiety [Recovered/Resolved]
  - Rheumatoid arthritis [Not Recovered/Not Resolved]
  - Peripheral swelling [Unknown]
  - Infection [Unknown]
  - Tooth infection [Recovering/Resolving]
  - Rheumatoid arthritis [Unknown]
  - Juvenile idiopathic arthritis [Unknown]
  - Drug ineffective [Recovered/Resolved]
  - Limb discomfort [Unknown]
  - Herpes zoster [Unknown]
  - Depression [Recovered/Resolved]
  - Joint range of motion decreased [Unknown]
  - Fear of disease [Unknown]
  - Stress [Not Recovered/Not Resolved]

NARRATIVE: CASE EVENT DATE: 2011
